FAERS Safety Report 8609055 (Version 6)
Quarter: 2022Q2

REPORT INFORMATION
  Report Type: Report from Study
  Country: US (occurrence: None)
  Receive Date: 20120611
  Receipt Date: 20220513
  Transmission Date: 20220721
  Serious: Yes (Death, Life-Threatening, Hospitalization, Other)
  Sender: FDA-Public Use
  Company Number: US-ROCHE-1067092

PATIENT
  Age: 75 Year
  Sex: Female
  Weight: 49.71 kg

DRUGS (3)
  1. BEVACIZUMAB [Suspect]
     Active Substance: BEVACIZUMAB
     Indication: Ovarian epithelial cancer
     Dosage: OVER 30-90 MINUTES ON DAY 1 OF CYCLES 2+. DRUG WITHDRAWN.?13/MAR/2012, PATIENT ADMINISTERED SUBSEQUE
     Route: 042
     Dates: start: 20120131, end: 20120221
  2. CARBOPLATIN [Suspect]
     Active Substance: CARBOPLATIN
     Indication: Ovarian epithelial cancer
     Dosage: AUC=6 IV ON DAY 1 (CYCLE 1-6)
     Route: 042
     Dates: start: 20120131
  3. PACLITAXEL [Suspect]
     Active Substance: PACLITAXEL
     Indication: Ovarian epithelial cancer
     Dosage: OVER 3 HOURS ON DAY 1 (CYCLES, 1-6).
     Route: 042
     Dates: start: 20120131

REACTIONS (21)
  - Respiratory failure [Fatal]
  - Hypotension [Recovered/Resolved]
  - Hypermagnesaemia [Recovered/Resolved]
  - Hypoalbuminaemia [Recovered/Resolved]
  - Hypocalcaemia [Recovered/Resolved]
  - Aspartate aminotransferase increased [Unknown]
  - Activated partial thromboplastin time prolonged [Recovering/Resolving]
  - Hypophosphataemia [Recovered/Resolved]
  - Hypotension [Recovered/Resolved]
  - Chronic kidney disease [Recovered/Resolved]
  - Enterocolitis infectious [Recovered/Resolved]
  - White blood cell count decreased [Recovered/Resolved]
  - Embolism [Recovered/Resolved with Sequelae]
  - Neutrophil count decreased [Recovered/Resolved]
  - Syncope [Recovered/Resolved]
  - White blood cell count decreased [Recovered/Resolved]
  - Nausea [Unknown]
  - Vomiting [Unknown]
  - Diarrhoea [Recovered/Resolved]
  - Fatigue [Recovered/Resolved]
  - Hypomagnesaemia [Recovered/Resolved]

NARRATIVE: CASE EVENT DATE: 20120318
